FAERS Safety Report 4749210-4 (Version None)
Quarter: 2005Q3

REPORT INFORMATION
  Report Type: 
  Country: None (occurrence: None)
  Receive Date: 20050817
  Receipt Date: 20050715
  Transmission Date: 20060218
  Serious: Yes (Hospitalization)
  Sender: FDA-Public Use
  Company Number: 11816

PATIENT
  Age: 4 Year
  Sex: Female

DRUGS (2)
  1. METOCLOPRAMIDE [Suspect]
     Indication: GASTROENTERITIS
     Dosage: 3 MG TID PO
     Route: 048
  2. METOCLOPRAMIDE [Suspect]
     Indication: VOMITING
     Dosage: 3 MG TID PO
     Route: 048

REACTIONS (4)
  - ABDOMINAL PAIN [None]
  - DIARRHOEA [None]
  - KETONURIA [None]
  - URINARY RETENTION [None]
